FAERS Safety Report 9413787 (Version 1)
Quarter: 2013Q3

REPORT INFORMATION
  Report Type: Spontaneous
  Country: US (occurrence: US)
  Receive Date: 20130723
  Receipt Date: 20130723
  Transmission Date: 20140515
  Serious: Yes (Hospitalization)
  Sender: FDA-Public Use
  Company Number: US-NOVOPROD-383162

PATIENT
  Age: 58 Year
  Sex: Female

DRUGS (2)
  1. NORDITROPIN FLEXPRO [Suspect]
     Indication: HYPOPITUITARISM
     Dosage: UNKNOWN
     Route: 058
  2. BACTRIM [Suspect]
     Indication: PRODUCT USED FOR UNKNOWN INDICATION
     Dosage: UNKNOWN
     Route: 048

REACTIONS (1)
  - Anaphylactic reaction [Recovered/Resolved]
